FAERS Safety Report 6542792-1 (Version None)
Quarter: 2010Q1

REPORT INFORMATION
  Report Type: 
  Country: None (occurrence: None)
  Receive Date: 20100114
  Receipt Date: 20100106
  Transmission Date: 20100710
  Serious: No
  Sender: FDA-Public Use
  Company Number: 20107931

PATIENT
  Sex: Female

DRUGS (4)
  1. LIORESAL [Suspect]
     Indication: MUSCLE SPASTICITY
     Dosage: MCG, DAILY, INTRATHECAL
     Route: 037
  2. PRIAIT [Concomitant]
  3. DILAUDID [Concomitant]
  4. MORPHINE [Concomitant]

REACTIONS (6)
  - FURUNCLE [None]
  - PRURITUS [None]
  - PSYCHOTIC DISORDER [None]
  - SCAB [None]
  - SCRATCH [None]
  - VISION BLURRED [None]
